FAERS Safety Report 11072872 (Version 5)
Quarter: 2015Q3

REPORT INFORMATION
  Report Type: Spontaneous
  Country: US (occurrence: US)
  Receive Date: 20150428
  Receipt Date: 20150731
  Transmission Date: 20151125
  Serious: Yes (Hospitalization)
  Sender: FDA-Public Use
  Company Number: US-PFIZER INC-2015141297

PATIENT
  Age: 71 Year
  Sex: Male

DRUGS (5)
  1. LISINOPRIL. [Concomitant]
     Active Substance: LISINOPRIL
     Dosage: UNK
  2. FLOMAX [Concomitant]
     Active Substance: TAMSULOSIN HYDROCHLORIDE
     Dosage: UNK
  3. SIMVASTATIN. [Concomitant]
     Active Substance: SIMVASTATIN
     Dosage: UNK
  4. SUTENT [Suspect]
     Active Substance: SUNITINIB MALATE
     Indication: METASTATIC RENAL CELL CARCINOMA
     Dosage: 37.5 MG, DAILY NO BREAKS (CONTINUOUS)
     Route: 048
     Dates: start: 20140401
  5. XGEVA [Suspect]
     Active Substance: DENOSUMAB
     Dosage: 120 MG, EVERY 4 WEEKS

REACTIONS (13)
  - Dry skin [Unknown]
  - Pain in extremity [Recovering/Resolving]
  - Fatigue [Unknown]
  - Diarrhoea [Unknown]
  - Gingival pain [Unknown]
  - Product use issue [Unknown]
  - Hypoaesthesia oral [Unknown]
  - Hernia [Recovered/Resolved]
  - Tooth disorder [Unknown]
  - Impaired healing [Unknown]
  - Jaw disorder [Unknown]
  - Skin fissures [Unknown]
  - Gingival recession [Unknown]

NARRATIVE: CASE EVENT DATE: 20150207
